FAERS Safety Report 4315212-5 (Version None)
Quarter: 2004Q1

REPORT INFORMATION
  Report Type: 
  Country: None (occurrence: None)
  Receive Date: 20040310
  Receipt Date: 20040219
  Transmission Date: 20041129
  Serious: Yes (Other)
  Sender: FDA-Public Use
  Company Number: US_010668221

PATIENT
  Age: 33 Year
  Sex: Male
  Weight: 80 kg

DRUGS (6)
  1. HUMALOG [Suspect]
     Dates: start: 19990101
  2. HUMULIN U [Suspect]
     Indication: DIABETES MELLITUS
     Dates: end: 19960101
  3. HUMULIN R [Suspect]
     Indication: DIABETES MELLITUS
     Dates: end: 19960101
  4. HUMULIN N [Suspect]
     Dates: end: 19990101
  5. LOTENSIN [Concomitant]
  6. ASPIRIN [Concomitant]

REACTIONS (8)
  - ARTHRALGIA [None]
  - BLOOD GLUCOSE FLUCTUATION [None]
  - EYE DISORDER [None]
  - FLUID RETENTION [None]
  - MOBILITY DECREASED [None]
  - RETINOPATHY [None]
  - VASCULAR RUPTURE [None]
  - VISION BLURRED [None]
